FAERS Safety Report 19004249 (Version 2)
Quarter: 2021Q2

REPORT INFORMATION
  Report Type: Other
  Country: US (occurrence: US)
  Receive Date: 20210313
  Receipt Date: 20210426
  Transmission Date: 20210717
  Serious: No
  Sender: FDA-Public Use
  Company Number: US-ROCHE-2787941

PATIENT
  Sex: Male

DRUGS (2)
  1. OCREVUS [Suspect]
     Active Substance: OCRELIZUMAB
     Dosage: 300 MG ONCE IN 2 WEEKS AND THEN 600 MG ONCE IN 6 MONTHS?DATE OF TREATMENT; 01/AUG/2019, 16/JAN/2020,
     Route: 042
     Dates: start: 20190124
  2. OCREVUS [Suspect]
     Active Substance: OCRELIZUMAB
     Indication: RELAPSING MULTIPLE SCLEROSIS
     Dosage: 300 MG IV ON DAY 1, 300 MG IV ON DAY 15
     Route: 042
     Dates: start: 20180724

REACTIONS (1)
  - COVID-19 [Unknown]
